FAERS Safety Report 11256375 (Version 1)
Quarter: 2015Q3

REPORT INFORMATION
  Report Type: Spontaneous
  Country: US (occurrence: US)
  Receive Date: 20150709
  Receipt Date: 20150709
  Transmission Date: 20151125
  Serious: Yes (Hospitalization)
  Sender: FDA-Public Use
  Company Number: US-JNJFOC-20150704996

PATIENT
  Age: 78 Year
  Sex: Female

DRUGS (9)
  1. FOLIC ACID. [Concomitant]
     Active Substance: FOLIC ACID
  2. ONDANSETRON [Concomitant]
     Active Substance: ONDANSETRON
  3. ASPIRIN. [Concomitant]
     Active Substance: ASPIRIN
  4. GLUCOSAMINE [Concomitant]
     Active Substance: GLUCOSAMINE
  5. CALCIUM 600+D [Concomitant]
     Active Substance: CALCIUM\VITAMIN D
  6. LEVOTHYROXINE. [Concomitant]
     Active Substance: LEVOTHYROXINE
  7. PREDNISONE. [Concomitant]
     Active Substance: PREDNISONE
  8. LISINOPRIL. [Concomitant]
     Active Substance: LISINOPRIL
  9. IMBRUVICA [Suspect]
     Active Substance: IBRUTINIB
     Indication: B-CELL LYMPHOMA
     Route: 048
     Dates: start: 20150404, end: 2015

REACTIONS (2)
  - Inflammation [Unknown]
  - Musculoskeletal chest pain [Unknown]

NARRATIVE: CASE EVENT DATE: 201506
